FAERS Safety Report 9200682 (Version 1)
Quarter: 2013Q1

REPORT INFORMATION
  Report Type: Spontaneous
  Country: US (occurrence: US)
  Receive Date: 20130331
  Receipt Date: 20130331
  Transmission Date: 20140127
  Serious: Yes (Hospitalization)
  Sender: FDA-Public Use
  Company Number: US-AMGEN-USASP2013021027

PATIENT
  Age: 73 Year
  Sex: Female

DRUGS (9)
  1. VECTIBIX [Suspect]
     Indication: COLORECTAL CANCER METASTATIC
     Dosage: 6 MG/KG, EVERY 14 DAYS
     Dates: start: 20121226
  2. LEUCOVORIN                         /00566701/ [Concomitant]
     Dosage: UNK
  3. OXALIPLATIN [Concomitant]
     Dosage: UNK
  4. 5 FLUOROURACIL                     /00098801/ [Concomitant]
     Dosage: UNK
  5. WARFARIN [Concomitant]
     Dosage: UNK
  6. CITALOPRAM [Concomitant]
     Dosage: UNK
  7. DOXYCYCLINE [Concomitant]
     Dosage: UNK
  8. MIRTAZAPINE [Concomitant]
     Dosage: UNK
  9. MULTIVITAMINS, PLAIN [Concomitant]
     Dosage: UNK

REACTIONS (1)
  - Hypomagnesaemia [Unknown]
